FAERS Safety Report 4394248-2 (Version None)
Quarter: 2004Q3

REPORT INFORMATION
  Report Type: 
  Country: None (occurrence: None)
  Receive Date: 20040707
  Receipt Date: 20040624
  Transmission Date: 20050211
  Serious: Yes (Life-Threatening)
  Sender: FDA-Public Use
  Company Number: 04P-163-0254219-00

PATIENT
  Age: 50 Year
  Sex: Female

DRUGS (8)
  1. HUMIRA [Suspect]
     Indication: RHEUMATOID ARTHRITIS
     Dosage: 40 MG, SUBCUTANEOUS
     Route: 058
     Dates: start: 20040201
  2. METHOTREXATE [Concomitant]
  3. FOLATE SODIUM [Concomitant]
  4. TAMOXIFEN [Concomitant]
  5. HYDROXYCHLOROQUINE PHOSPHATE [Concomitant]
  6. BUCINDOLOL HYDROCHLORIDE [Concomitant]
  7. FEXOFENADINE HYDROCHLORIDE [Concomitant]
  8. KELFER [Concomitant]

REACTIONS (7)
  - ADENOCARCINOMA [None]
  - HEPATIC NEOPLASM MALIGNANT [None]
  - LUNG NEOPLASM [None]
  - LUNG NEOPLASM MALIGNANT [None]
  - MALIGNANT PLEURAL EFFUSION [None]
  - MAMMOGRAM ABNORMAL [None]
  - METASTASES TO BONE [None]
